FAERS Safety Report 4894613-0 (Version None)
Quarter: 2006Q1

REPORT INFORMATION
  Report Type: 
  Country: None (occurrence: None)
  Receive Date: 20060127
  Receipt Date: 20050112
  Transmission Date: 20060701
  Serious: Yes (Death, Disabling, Other)
  Sender: FDA-Public Use
  Company Number: US-MERCK-0501USA01867

PATIENT
  Age: 62 Year
  Sex: Male

DRUGS (1)
  1. VIOXX [Suspect]
     Route: 048
     Dates: start: 20000101, end: 20031101

REACTIONS (5)
  - ARTHRITIS [None]
  - CARDIAC ARREST [None]
  - CATARACT [None]
  - MYOCARDIAL INFARCTION [None]
  - RETINAL TEAR [None]
